FAERS Safety Report 23983699 (Version 1)
Quarter: 2024Q2

REPORT INFORMATION
  Report Type: Report from Study
  Country: CA (occurrence: CA)
  Receive Date: 20240618
  Receipt Date: 20240618
  Transmission Date: 20240716
  Serious: Yes (Death)
  Sender: FDA-Public Use
  Company Number: CA-BEH-2024168740

PATIENT
  Age: 86 Year
  Sex: Male
  Weight: 82.2 kg

DRUGS (24)
  1. HIZENTRA [Suspect]
     Active Substance: HUMAN IMMUNOGLOBULIN G
     Indication: Primary immunodeficiency syndrome
     Dosage: UNK, QW
     Route: 058
     Dates: start: 20240213
  2. HIZENTRA [Suspect]
     Active Substance: HUMAN IMMUNOGLOBULIN G
     Indication: Chronic inflammatory demyelinating polyradiculoneuropathy
  3. COMBIVENT [Concomitant]
     Active Substance: ALBUTEROL SULFATE\IPRATROPIUM BROMIDE
  4. SCOPOLAMINE [Concomitant]
     Active Substance: SCOPOLAMINE
     Indication: Respiratory distress
     Dosage: UNK, PRN
  5. VERSED [Concomitant]
     Active Substance: MIDAZOLAM HYDROCHLORIDE
     Indication: Respiratory distress
     Dosage: UNK, PRN
  6. MORPHINE [Concomitant]
     Active Substance: MORPHINE
     Indication: Respiratory distress
     Dosage: UNK, PRN
  7. PLAVIX [Concomitant]
     Active Substance: CLOPIDOGREL BISULFATE
  8. TAMBOCOR [Concomitant]
     Active Substance: FLECAINIDE ACETATE
  9. SILDENAFIL CITRATE [Concomitant]
     Active Substance: SILDENAFIL CITRATE
     Dosage: UNK, PRN
  10. TYLENOL [Concomitant]
     Active Substance: ACETAMINOPHEN
     Dosage: UNK, PRN
  11. DIAZEPAM [Concomitant]
     Active Substance: DIAZEPAM
  12. PIROXICAM [Concomitant]
     Active Substance: PIROXICAM
  13. REMERON [Concomitant]
     Active Substance: MIRTAZAPINE
  14. SEROQUEL [Concomitant]
     Active Substance: QUETIAPINE FUMARATE
  15. SEROQUEL XR [Concomitant]
     Active Substance: QUETIAPINE FUMARATE
  16. KAYEXALATE [Concomitant]
     Active Substance: SODIUM POLYSTYRENE SULFONATE
  17. POLYETHYLENE GLYCOL 3350 [Concomitant]
     Active Substance: POLYETHYLENE GLYCOL 3350
  18. ZOFRAN [Concomitant]
     Active Substance: ONDANSETRON HYDROCHLORIDE
  19. AXID [ESOMEPRAZOLE MAGNESIUM] [Concomitant]
  20. GLUCOPHAGE [Concomitant]
     Active Substance: METFORMIN HYDROCHLORIDE
  21. JANUVIA [Concomitant]
     Active Substance: SITAGLIPTIN PHOSPHATE
  22. SYNTHROID [Concomitant]
     Active Substance: LEVOTHYROXINE SODIUM
  23. ACETYLCYSTEINE [Concomitant]
     Active Substance: ACETYLCYSTEINE
  24. CLOTRIMAZOLE [Concomitant]
     Active Substance: CLOTRIMAZOLE

REACTIONS (2)
  - Death [Fatal]
  - Infusion site oedema [Unknown]

NARRATIVE: CASE EVENT DATE: 20240213
